FAERS Safety Report 4322583-2 (Version None)
Quarter: 2004Q1

REPORT INFORMATION
  Report Type: 
  Country: None (occurrence: None)
  Receive Date: 20040319
  Receipt Date: 20040121
  Transmission Date: 20041129
  Serious: Yes (Hospitalization)
  Sender: FDA-Public Use
  Company Number: US-JNJFOC-20040104260

PATIENT
  Age: 31 Year
  Sex: Female

DRUGS (3)
  1. ORTHO EVRA [Suspect]
     Indication: CONTRACEPTION
     Dosage: 1 DOSE(S), 3 IN 4 WEEK, TRANSDERMAL
     Route: 062
     Dates: start: 20040111, end: 20040118
  2. TOPAMAX [Suspect]
     Indication: MIGRAINE
     Dosage: 400 MG
  3. IMITREX [Concomitant]

REACTIONS (2)
  - LOSS OF CONSCIOUSNESS [None]
  - MIGRAINE [None]
